FAERS Safety Report 21959586 (Version 1)
Quarter: 2023Q1

REPORT INFORMATION
  Report Type: Report from Study
  Country: US (occurrence: US)
  Receive Date: 20230206
  Receipt Date: 20230206
  Transmission Date: 20230418
  Serious: Yes (Other)
  Sender: FDA-Public Use
  Company Number: US-ALLERGAN-2302958US

PATIENT
  Sex: Female

DRUGS (2)
  1. BOTULINUM TOXIN TYPE A [Suspect]
     Active Substance: BOTULINUM TOXIN TYPE A
     Indication: Migraine
     Dosage: UNK, SINGLE
     Route: 030
     Dates: start: 20230131, end: 20230131
  2. BOTULINUM TOXIN TYPE A [Suspect]
     Active Substance: BOTULINUM TOXIN TYPE A
     Dosage: UNK, SINGLE
     Route: 030
     Dates: start: 20230131, end: 20230131

REACTIONS (6)
  - Loss of consciousness [Unknown]
  - Neoplasm [Unknown]
  - Seizure [Unknown]
  - Presyncope [Unknown]
  - Urinary incontinence [Unknown]
  - Malaise [Unknown]
